FAERS Safety Report 9097037 (Version 2)
Quarter: 2013Q2

REPORT INFORMATION
  Report Type: Spontaneous
  Country: AT (occurrence: None)
  Receive Date: 20130123
  Receipt Date: 20130517
  Transmission Date: 20140414
  Serious: Yes (Hospitalization)
  Sender: FDA-Public Use
  Company Number: 2013TP000026

PATIENT
  Age: 64 Year
  Sex: Female
  Weight: 84 kg

DRUGS (10)
  1. TRAMABENE [Concomitant]
  2. NOVALGIN /00169801/ [Concomitant]
  3. VERSATIS [Suspect]
     Indication: NEURALGIA
     Route: 061
     Dates: start: 20121121, end: 20130207
  4. CRESTOR /01588601/ [Concomitant]
  5. PLETAL [Concomitant]
  6. PANTOPRAZOLE /01263202/ [Concomitant]
  7. ENALAPRIL MALEATE W/HYDROCHLOROTHIAZIDE [Concomitant]
  8. THROMBO ASS [Concomitant]
  9. MARCOUMAR [Concomitant]
  10. ATORVASTATIN CALCIUM [Concomitant]

REACTIONS (6)
  - Sciatica [None]
  - Intervertebral disc protrusion [None]
  - Spinal osteoarthritis [None]
  - Post procedural complication [None]
  - C-reactive protein increased [None]
  - Osteochondrosis [None]
